FAERS Safety Report 9779478 (Version 1)
Quarter: 2013Q4

REPORT INFORMATION
  Report Type: Spontaneous
  Country: US (occurrence: US)
  Receive Date: 20131223
  Receipt Date: 20131223
  Transmission Date: 20140711
  Serious: Yes (Hospitalization, Other)
  Sender: FDA-Public Use
  Company Number: US-CUBIST PHARMACEUTICAL, INC.-2013CBST001401

PATIENT
  Sex: 0

DRUGS (25)
  1. CUBICIN [Suspect]
     Indication: PRODUCT USED FOR UNKNOWN INDICATION
     Dosage: UNK UNK, UNK
     Route: 042
     Dates: end: 20131201
  2. DAPAGLIFLOZIN BLINDED [Suspect]
     Indication: TYPE 2 DIABETES MELLITUS
     Dosage: UNK UNK, UNK
     Route: 048
     Dates: start: 20130718
  3. DAPAGLIFLOZIN BLINDED [Suspect]
     Dosage: UNK UNK, UNK
     Route: 048
     Dates: start: 20130821, end: 20131201
  4. METFORMIN HYDROCHLORIDE [Suspect]
     Indication: TYPE 2 DIABETES MELLITUS
     Dosage: 500 MG, BID
     Route: 048
  5. VICTOZA [Suspect]
     Indication: TYPE 2 DIABETES MELLITUS
     Dosage: 1.8 MG, QD
     Route: 058
  6. NOVOLOG [Suspect]
     Indication: TYPE 2 DIABETES MELLITUS
     Dosage: 60 IU, TID
     Route: 065
  7. CRESTOR [Suspect]
     Indication: PRODUCT USED FOR UNKNOWN INDICATION
     Dosage: 5 MG, QD
     Route: 048
     Dates: end: 20131201
  8. CARVEDILOL [Concomitant]
     Indication: HYPERTENSION
     Dosage: UNK UNK, UNK
     Route: 048
  9. METOLAZONE [Concomitant]
     Indication: DIURETIC THERAPY
     Dosage: UNK UNK, UNK
     Route: 048
  10. GABAPENTIN [Concomitant]
     Indication: NEUROPATHY PERIPHERAL
     Dosage: UNK UNK, UNK
     Route: 048
  11. POTASSIUM CHLORIDE [Concomitant]
     Indication: HYPOKALAEMIA
     Dosage: UNK UNK, UNK
     Route: 048
  12. ASPIRIN [Concomitant]
     Indication: COAGULOPATHY
     Dosage: UNK UNK, UNK
     Route: 048
  13. METANX [Concomitant]
     Indication: VITAMIN B COMPLEX DEFICIENCY
     Dosage: UNK UNK, UNK
     Route: 048
  14. VITAMIN C                          /00008001/ [Concomitant]
     Indication: PRODUCT USED FOR UNKNOWN INDICATION
     Dosage: UNK UNK, UNK
     Route: 048
  15. HYDROCODONE [Concomitant]
     Indication: PAIN
     Dosage: UNK UNK, UNK
     Route: 048
     Dates: start: 20130723, end: 20130801
  16. HYDROCODONE [Concomitant]
     Dosage: UNK, UNK
     Route: 048
     Dates: start: 20130815, end: 20130831
  17. AMOXICILLIN [Concomitant]
     Indication: TOOTH EXTRACTION
     Dosage: UNK UNK, UNK
     Route: 048
     Dates: start: 20130723, end: 20130801
  18. CLINDAMYCIN [Concomitant]
     Indication: CELLULITIS
     Dosage: UNK UNK, UNK
     Route: 048
     Dates: start: 20130830, end: 20130908
  19. METHYLPREDNISOLONE [Concomitant]
     Indication: INFLAMMATION
     Dosage: UNK UNK, UNK
     Route: 030
     Dates: start: 20130905, end: 20130905
  20. BETAMETHASONE [Concomitant]
     Indication: INFLAMMATION
     Dosage: UNK UNK, UNK
     Route: 058
     Dates: start: 20130910, end: 20130910
  21. BETAMETHASONE [Concomitant]
     Dosage: UNK, UNK
     Route: 058
     Dates: start: 20130912, end: 20130912
  22. PNEUMOVAX [Concomitant]
     Indication: PROPHYLAXIS
     Dosage: UNK UNK, UNK
     Route: 030
     Dates: start: 20131112, end: 20131112
  23. CALCIUM [Concomitant]
     Indication: CALCIUM DEFICIENCY
     Dosage: UNK UNK, UNK
     Route: 065
  24. VITAMIN D3 [Concomitant]
     Indication: VITAMIN D DEFICIENCY
     Dosage: UNK UNK, UNK
     Route: 065
  25. SACCHAROMYCES BOULARDII [Concomitant]
     Indication: PROBIOTIC THERAPY
     Dosage: 250 MG, BID
     Route: 048

REACTIONS (7)
  - Rhabdomyolysis [Unknown]
  - Renal failure [Unknown]
  - Blood creatine phosphokinase increased [Unknown]
  - Carpal tunnel decompression [Unknown]
  - Osteomyelitis [Unknown]
  - Systemic inflammatory response syndrome [Unknown]
  - Cellulitis [Unknown]
